FAERS Safety Report 20637990 (Version 3)
Quarter: 2022Q2

REPORT INFORMATION
  Report Type: Report from Study
  Country: VN (occurrence: VN)
  Receive Date: 20220325
  Receipt Date: 20220408
  Transmission Date: 20220720
  Serious: Yes (Other)
  Sender: FDA-Public Use
  Company Number: VN-NOVARTISPH-NVSC2022VN068615

PATIENT
  Age: 27 Year
  Sex: Female
  Weight: 45 kg

DRUGS (3)
  1. SECUKINUMAB [Suspect]
     Active Substance: SECUKINUMAB
     Indication: Psoriatic arthropathy
     Dosage: 300 MG, UNKNOWN
     Route: 065
     Dates: start: 202104, end: 202106
  2. SECUKINUMAB [Suspect]
     Active Substance: SECUKINUMAB
     Dosage: 150-300 MG, UNKNOWN
     Route: 065
     Dates: start: 202107
  3. METHOTREXATE [Suspect]
     Active Substance: METHOTREXATE
     Indication: Psoriatic arthropathy
     Dosage: UNK
     Route: 048
     Dates: start: 2015, end: 201901

REACTIONS (7)
  - Cutaneous vasculitis [Recovering/Resolving]
  - Glomerulonephritis [Recovering/Resolving]
  - Hepatic enzyme increased [Recovering/Resolving]
  - Skin discolouration [Unknown]
  - Fatigue [Unknown]
  - Haematuria [Unknown]
  - Skin haemorrhage [Unknown]
